FAERS Safety Report 10387413 (Version 2)
Quarter: 2014Q3

REPORT INFORMATION
  Report Type: Report from Study
  Country: BR (occurrence: BR)
  Receive Date: 20140815
  Receipt Date: 20140815
  Transmission Date: 20150326
  Serious: Yes (Death, Hospitalization, Other)
  Sender: FDA-Public Use
  Company Number: BR-ABBVIE-13P-020-1047661-00

PATIENT
  Age: 71 Year
  Sex: Female
  Weight: 40 kg

DRUGS (5)
  1. UNKNOWN MEDICATION [Suspect]
     Active Substance: UNSPECIFIED INGREDIENT
     Indication: PRODUCT USED FOR UNKNOWN INDICATION
     Dosage: USED DURING A LONG TIME
  2. UNKNOWN CALMATIVE [Concomitant]
     Indication: PRODUCT USED FOR UNKNOWN INDICATION
  3. PIROXICAM. [Concomitant]
     Active Substance: PIROXICAM
     Indication: PRODUCT USED FOR UNKNOWN INDICATION
  4. HUMIRA [Suspect]
     Active Substance: ADALIMUMAB
     Indication: RHEUMATOID ARTHRITIS
     Route: 058
     Dates: start: 20120614, end: 20130101
  5. DICLOFENAC SODIUM. [Concomitant]
     Active Substance: DICLOFENAC SODIUM
     Indication: PAIN

REACTIONS (3)
  - Hepatic steatosis [Fatal]
  - Blood disorder [Fatal]
  - Dengue fever [Fatal]

NARRATIVE: CASE EVENT DATE: 20121213
